FAERS Safety Report 23809995 (Version 1)
Quarter: 2024Q2

REPORT INFORMATION
  Report Type: Spontaneous
  Country: US (occurrence: None)
  Receive Date: 20240501
  Receipt Date: 20240501
  Transmission Date: 20240715
  Serious: Yes (Death)
  Sender: FDA-Public Use
  Company Number: None

PATIENT
  Sex: Male

DRUGS (2)
  1. TESTOPEL [Suspect]
     Active Substance: TESTOSTERONE
     Indication: Product used for unknown indication
     Dosage: OTHER QUANTITY : 10  PELLETS;?OTHER FREQUENCY : EVERY 3 MONTHS;?
     Route: 058
     Dates: start: 20220608, end: 20240222
  2. TROCAR [Concomitant]

REACTIONS (1)
  - Death [None]
